FAERS Safety Report 8247405-9 (Version None)
Quarter: 2012Q1

REPORT INFORMATION
  Report Type: 
  Country: None (occurrence: None)
  Receive Date: 20120330
  Receipt Date: 20120328
  Transmission Date: 20120608
  Serious: Yes (Death, Hospitalization)
  Sender: FDA-Public Use
  Company Number: US-B.I. PHARMACEUTICALS,INC./RIDGEFIELD-2012-BP-05547BP

PATIENT
  Age: 86 Year
  Sex: Female

DRUGS (3)
  1. PRADAXA [Suspect]
     Indication: ATRIAL FIBRILLATION
     Dosage: 300 MG
     Route: 048
     Dates: start: 20110501
  2. ANTIDEPRESSANTS [Concomitant]
  3. ASPIRIN [Concomitant]
     Indication: CORONARY ARTERY DISEASE

REACTIONS (5)
  - SUBDURAL HAEMATOMA [None]
  - SKULL FRACTURE [None]
  - HAEMORRHAGE [None]
  - FALL [None]
  - HAEMORRHAGE INTRACRANIAL [None]
